FAERS Safety Report 7777520-5 (Version None)
Quarter: 2011Q3

REPORT INFORMATION
  Report Type: 
  Country: None (occurrence: None)
  Receive Date: 20110926
  Receipt Date: 20110919
  Transmission Date: 20111222
  Serious: Yes (Other)
  Sender: FDA-Public Use
  Company Number: US-SANOFI-AVENTIS-2011SA061650

PATIENT
  Age: 70 Year
  Sex: Female

DRUGS (1)
  1. MULTAQ [Suspect]
     Indication: ATRIAL FIBRILLATION
     Route: 048
     Dates: start: 20110808

REACTIONS (2)
  - BLOOD PRESSURE INCREASED [None]
  - DRUG INEFFECTIVE [None]
